FAERS Safety Report 11425638 (Version 2)
Quarter: 2015Q3

REPORT INFORMATION
  Report Type: Spontaneous
  Country: US (occurrence: US)
  Receive Date: 20150821
  Receipt Date: 20150903
  Transmission Date: 20151125
  Serious: No
  Sender: FDA-Public Use
  Company Number: US-ELI_LILLY_AND_COMPANY-US201101004534

PATIENT
  Sex: Male

DRUGS (3)
  1. HUMALOG MIX75/25 [Suspect]
     Active Substance: INSULIN LISPRO
     Indication: DIABETES MELLITUS
     Dosage: 30 U, 2/D
  2. HUMULIN 70/30 [Suspect]
     Active Substance: INSULIN HUMAN
  3. METFORMIN [Concomitant]
     Active Substance: METFORMIN HYDROCHLORIDE
     Dosage: 500 D/F, 2/D
     Dates: start: 201012

REACTIONS (5)
  - Blood glucose increased [Unknown]
  - Hyperhidrosis [Unknown]
  - Dizziness [Unknown]
  - Tremor [Unknown]
  - Blood glucose decreased [Unknown]
